FAERS Safety Report 4744613-6 (Version None)
Quarter: 2005Q3

REPORT INFORMATION
  Report Type: 
  Country: None (occurrence: None)
  Receive Date: 20050809
  Receipt Date: 20050114
  Transmission Date: 20060218
  Serious: Yes (Death, Life-Threatening, Hospitalization)
  Sender: FDA-Public Use
  Company Number: 04R-163-0271517-00

PATIENT
  Sex: Female
  Weight: 1.025 kg

DRUGS (4)
  1. SURVANTA [Suspect]
     Indication: RESPIRATORY DISTRESS
     Dates: start: 20030511, end: 20030511
  2. SODIUM BICARBONATE [Concomitant]
  3. NITRIC OXIDE [Concomitant]
  4. BUMETANIDE [Concomitant]

REACTIONS (4)
  - DEATH [None]
  - NEONATAL RESPIRATORY FAILURE [None]
  - PNEUMOTHORAX [None]
  - PULMONARY INTERSTITIAL EMPHYSEMA SYNDROME [None]
